FAERS Safety Report 8852800 (Version 2)
Quarter: 2012Q4

REPORT INFORMATION
  Report Type: 
  Country: FR (occurrence: FR)
  Receive Date: 20121022
  Receipt Date: 20121119
  Transmission Date: 20130627
  Serious: Yes (Hospitalization)
  Sender: FDA-Public Use
  Company Number: FR-BRISTOL-MYERS SQUIBB COMPANY-17037227

PATIENT
  Sex: Female

DRUGS (3)
  1. ELISOR TABS 20 MG [Suspect]
     Indication: TRANSIENT ISCHAEMIC ATTACK
     Dates: start: 2005
  2. XYZAL [Concomitant]
     Indication: HYPERSENSITIVITY
  3. KARDEGIC [Concomitant]

REACTIONS (4)
  - Nervous system disorder [Unknown]
  - Pruritus [Unknown]
  - Paraesthesia [Unknown]
  - Dyspepsia [Unknown]
